FAERS Safety Report 22002099 (Version 1)
Quarter: 2023Q1

REPORT INFORMATION
  Report Type: Spontaneous
  Country: NL (occurrence: NL)
  Receive Date: 20230216
  Receipt Date: 20230216
  Transmission Date: 20230418
  Serious: Yes (Hospitalization)
  Sender: FDA-Public Use
  Company Number: None

PATIENT
  Sex: Male
  Weight: 100 kg

DRUGS (2)
  1. ONDANSETRON [Suspect]
     Active Substance: ONDANSETRON
     Indication: Procedural nausea
     Dosage: 1 DOSAGE FORM {DF}, 3 TIMES A DAY, AS NEEDED
     Route: 065
     Dates: start: 20230126, end: 20230127
  2. METOCLOPRAMIDE [Suspect]
     Active Substance: METOCLOPRAMIDE
     Indication: Procedural nausea
     Dosage: 1 DOSAGE FORM {DF}, 3 TIMES A DAY, AS NEEDED
     Route: 065
     Dates: start: 20230126, end: 20230127

REACTIONS (1)
  - Akathisia [Recovered/Resolved]
